FAERS Safety Report 5574815-0 (Version None)
Quarter: 2007Q4

REPORT INFORMATION
  Report Type: 
  Country: None (occurrence: None)
  Receive Date: 20071130
  Receipt Date: 20070912
  Transmission Date: 20080405
  Serious: No
  Sender: FDA-Public Use
  Company Number: PHEH2007US12371

PATIENT
  Age: 70 Year
  Sex: Female

DRUGS (3)
  1. TEKTURNA [Suspect]
     Indication: HYPERTENSION
     Dosage: 150 MG QD ORAL
     Route: 048
     Dates: start: 20070813, end: 20070817
  2. ZOCOR [Concomitant]
  3. ASPIRIN [Concomitant]

REACTIONS (3)
  - ERYTHEMA [None]
  - HYPERHIDROSIS [None]
  - OEDEMA PERIPHERAL [None]
